FAERS Safety Report 20803932 (Version 1)
Quarter: 2022Q2

REPORT INFORMATION
  Report Type: Spontaneous
  Country: US (occurrence: US)
  Receive Date: 20220509
  Receipt Date: 20220509
  Transmission Date: 20220721
  Serious: Yes (Death, Other)
  Sender: FDA-Public Use
  Company Number: US-GW PHARMA-2022-US-015005

PATIENT
  Sex: Male

DRUGS (18)
  1. EPIDIOLEX [Suspect]
     Active Substance: CANNABIDIOL
     Indication: Product used for unknown indication
     Dosage: 4 MILLILITER, BID
  2. HUMIRA [Concomitant]
     Active Substance: ADALIMUMAB
  3. BACTRIM [Concomitant]
     Active Substance: SULFAMETHOXAZOLE\TRIMETHOPRIM
  4. FLAGYL [Concomitant]
     Active Substance: METRONIDAZOLE\METRONIDAZOLE HYDROCHLORIDE
  5. BENEFIBER [WHEAT DEXTRIN] [Concomitant]
  6. KLONOPIN [Concomitant]
     Active Substance: CLONAZEPAM
  7. SINGULAIR [Concomitant]
     Active Substance: MONTELUKAST SODIUM
  8. BOTOX [Concomitant]
     Active Substance: ONABOTULINUMTOXINA
  9. VALPROIC ACID [Concomitant]
     Active Substance: VALPROIC ACID
  10. FLOVENT [Concomitant]
     Active Substance: FLUTICASONE PROPIONATE
  11. DIASTAT ACUDIAL [Concomitant]
     Active Substance: DIAZEPAM
  12. ZYRTEC [Concomitant]
     Active Substance: CETIRIZINE HYDROCHLORIDE
  13. BACLOFEN [Concomitant]
     Active Substance: BACLOFEN
  14. FLUTICASONE PROPIONATE [Concomitant]
     Active Substance: FLUTICASONE PROPIONATE
  15. LOPERAMIDE [Concomitant]
     Active Substance: LOPERAMIDE
  16. PYRIDOXINE [Concomitant]
     Active Substance: PYRIDOXINE
  17. KEPPRA [Concomitant]
     Active Substance: LEVETIRACETAM
  18. FYCOMPA [Concomitant]
     Active Substance: PERAMPANEL

REACTIONS (1)
  - Death [Fatal]
